FAERS Safety Report 23933403 (Version 1)
Quarter: 2024Q2

REPORT INFORMATION
  Report Type: Spontaneous
  Country: DE (occurrence: None)
  Receive Date: 20240603
  Receipt Date: 20240603
  Transmission Date: 20240716
  Serious: Yes (Life-Threatening, Hospitalization)
  Sender: FDA-Public Use
  Company Number: 2024A127149

PATIENT
  Sex: Female
  Weight: 80 kg

DRUGS (5)
  1. ANDEXANET ALFA [Suspect]
     Active Substance: ANDEXANET ALFA
     Indication: Anticoagulant therapy
     Dates: start: 20240421, end: 20240421
  2. ATORVASTATIN [Concomitant]
     Active Substance: ATORVASTATIN
  3. CHOLECALCIFEROL [Concomitant]
     Active Substance: CHOLECALCIFEROL
  4. TORSEMIDE [Concomitant]
     Active Substance: TORSEMIDE
  5. BISOPROLOL 2 [Concomitant]

REACTIONS (2)
  - Cerebral infarction [Unknown]
  - Monoparesis [Unknown]

NARRATIVE: CASE EVENT DATE: 20210401
